FAERS Safety Report 9330577 (Version 1)
Quarter: 2013Q2

REPORT INFORMATION
  Report Type: Spontaneous
  Country: US (occurrence: None)
  Receive Date: 20130604
  Receipt Date: 20130604
  Transmission Date: 20140414
  Serious: No
  Sender: FDA-Public Use
  Company Number: None

PATIENT
  Age: 57 Year
  Sex: Female

DRUGS (5)
  1. STIVARGA 40 MG BAYER [Suspect]
     Indication: RECTAL CANCER
     Route: 048
     Dates: start: 20130417, end: 201305
  2. ALMODIPINE [Concomitant]
  3. CLONIDINE [Concomitant]
  4. LABETALOL [Concomitant]
  5. LISINOPRIL [Concomitant]

REACTIONS (3)
  - Hypertension [None]
  - Burning sensation [None]
  - Carcinoembryonic antigen increased [None]
